FAERS Safety Report 6140272-9 (Version None)
Quarter: 2009Q1

REPORT INFORMATION
  Report Type: 
  Country: None (occurrence: None)
  Receive Date: 20090324
  Receipt Date: 20090318
  Transmission Date: 20090719
  Serious: Yes (Hospitalization)
  Sender: FDA-Public Use
  Company Number: GXKR2009DE03434

PATIENT
  Age: 83 Year
  Sex: Female

DRUGS (1)
  1. TRIAMCINOLONE [Suspect]
     Indication: CHOROIDAL NEOVASCULARISATION
     Dosage: 0.4 ML, ONCE/SINGLE, INTRAVITREAL IN

REACTIONS (6)
  - EYEBALL RUPTURE [None]
  - HYPHAEMA [None]
  - HYPOTONIA [None]
  - IRIDOCELE [None]
  - LENS DISLOCATION [None]
  - TINNITUS [None]
